FAERS Safety Report 8353988-0 (Version None)
Quarter: 2012Q2

REPORT INFORMATION
  Report Type: 
  Country: None (occurrence: None)
  Receive Date: 20120511
  Receipt Date: 20120509
  Transmission Date: 20120825
  Serious: No
  Sender: FDA-Public Use
  Company Number: US-PFIZER INC-2012106654

PATIENT
  Sex: Female
  Weight: 70.295 kg

DRUGS (5)
  1. FLEXERIL [Suspect]
     Dosage: 10 MG, DAILY
  2. LYRICA [Suspect]
     Indication: NECK PAIN
     Dosage: 150 MG, 2X/DAY
     Route: 048
     Dates: start: 20110101
  3. LYRICA [Suspect]
     Dosage: 300 MG, 2X/DAY
     Route: 048
  4. FLEXERIL [Suspect]
     Indication: MUSCLE RELAXANT THERAPY
     Dosage: UNK
  5. OMEPRAZOLE [Concomitant]
     Indication: DYSPEPSIA
     Dosage: DAILY

REACTIONS (2)
  - NECK PAIN [None]
  - SOMNOLENCE [None]
